FAERS Safety Report 6619273-X (Version None)
Quarter: 2010Q1

REPORT INFORMATION
  Report Type: 
  Country: None (occurrence: None)
  Receive Date: 20100303
  Receipt Date: 20100217
  Transmission Date: 20100710
  Serious: Yes (Hospitalization)
  Sender: FDA-Public Use
  Company Number: 8025891

PATIENT
  Sex: Female
  Weight: 66 kg

DRUGS (11)
  1. CERTOLIZUMAB PEGOL (CERTOLIZUMAB PEGOL) [Suspect]
     Indication: RHEUMATOID ARTHRITIS
     Dosage: SEE IMAGE
     Route: 058
     Dates: start: 20050608, end: 20060524
  2. CERTOLIZUMAB PEGOL (CERTOLIZUMAB PEGOL) [Suspect]
     Indication: RHEUMATOID ARTHRITIS
     Dosage: SEE IMAGE
     Route: 058
     Dates: start: 20060607, end: 20070801
  3. ACIDUM FOLICUM HAENSELER [Concomitant]
  4. ENAP-HL /01098101/ [Concomitant]
  5. METHOTREXATE [Concomitant]
  6. CELEBREX [Concomitant]
  7. AMOXICILLIN [Concomitant]
  8. HEXORAL [Concomitant]
  9. AMBROHEXAL [Concomitant]
  10. CEFAZOLIN [Concomitant]
  11. AZITHROMYCIN [Concomitant]

REACTIONS (11)
  - ACUTE TONSILLITIS [None]
  - ALANINE AMINOTRANSFERASE INCREASED [None]
  - ASPARTATE AMINOTRANSFERASE INCREASED [None]
  - BRONCHITIS [None]
  - BRONCHOSTENOSIS [None]
  - DRUG INEFFECTIVE [None]
  - INFLAMMATION [None]
  - PLATELET COUNT DECREASED [None]
  - PNEUMONIA [None]
  - PULMONARY TUBERCULOSIS [None]
  - TUBERCULOSIS OF INTRATHORACIC LYMPH NODES [None]
